FAERS Safety Report 6172453-2 (Version None)
Quarter: 2009Q2

REPORT INFORMATION
  Report Type: 
  Country: None (occurrence: None)
  Receive Date: 20090424
  Receipt Date: 20081201
  Transmission Date: 20091009
  Serious: No
  Sender: FDA-Public Use
  Company Number: ALL1-2008-03440

PATIENT
  Age: 11 Year
  Sex: Female
  Weight: 45.4 kg

DRUGS (1)
  1. VYVANSE [Suspect]
     Indication: ATTENTION DEFICIT/HYPERACTIVITY DISORDER
     Dosage: 1X/DAY:QD (1/2 OF A 70 MG. CAPSULE), ORAL
     Route: 048
     Dates: start: 20081201

REACTIONS (4)
  - CRYING [None]
  - FEELING JITTERY [None]
  - HEADACHE [None]
  - WRONG TECHNIQUE IN DRUG USAGE PROCESS [None]
